FAERS Safety Report 23166726 (Version 2)
Quarter: 2023Q4

REPORT INFORMATION
  Report Type: Spontaneous
  Country: CA (occurrence: CA)
  Receive Date: 20231109
  Receipt Date: 20231122
  Transmission Date: 20240109
  Serious: Yes (Other)
  Sender: FDA-Public Use
  Company Number: CA-TEVA-2023-CA-2942160

PATIENT
  Age: 3 Decade
  Sex: Female

DRUGS (3)
  1. VALACYCLOVIR HYDROCHLORIDE [Suspect]
     Active Substance: VALACYCLOVIR HYDROCHLORIDE
     Indication: Evidence based treatment
     Route: 065
  2. COMIRNATY (TOZINAMERAN) [Suspect]
     Active Substance: TOZINAMERAN
     Indication: COVID-19 immunisation
     Dosage: RECEIVED 4 DOSES
     Route: 065
  3. LOTEPREDNOL [Suspect]
     Active Substance: LOTEPREDNOL
     Indication: Punctate keratitis
     Route: 065

REACTIONS (3)
  - Punctate keratitis [Unknown]
  - Maternal exposure during pregnancy [Unknown]
  - Live birth [Unknown]
